FAERS Safety Report 6152221-8 (Version None)
Quarter: 2009Q2

REPORT INFORMATION
  Report Type: 
  Country: None (occurrence: None)
  Receive Date: 20090410
  Receipt Date: 20081222
  Transmission Date: 20091009
  Serious: No
  Sender: FDA-Public Use
  Company Number: US-ASTRAZENECA-2008UW28613

PATIENT
  Sex: Female

DRUGS (2)
  1. ZESTORETIC [Suspect]
     Dosage: UNKNOWN
     Route: 048
  2. ASPIRIN [Concomitant]

REACTIONS (4)
  - CHEST PAIN [None]
  - COUGH [None]
  - INCORRECT ROUTE OF DRUG ADMINISTRATION [None]
  - INCREASED UPPER AIRWAY SECRETION [None]
